FAERS Safety Report 20605444 (Version 2)
Quarter: 2022Q3

REPORT INFORMATION
  Report Type: Spontaneous
  Country: US (occurrence: US)
  Receive Date: 20220317
  Receipt Date: 20220805
  Transmission Date: 20221026
  Serious: Yes (Other)
  Sender: FDA-Public Use
  Company Number: US-ROCHE-2907279

PATIENT
  Age: 65 Year
  Sex: Female
  Weight: 88.529 kg

DRUGS (21)
  1. CLONAZEPAM [Suspect]
     Active Substance: CLONAZEPAM
     Indication: Muscle spasms
     Dosage: 1 MG, DAILY (EVERY NIGHT)?1 TIME PER DAY
     Route: 048
  2. CLONAZEPAM [Suspect]
     Active Substance: CLONAZEPAM
     Indication: Muscle spasticity
     Dosage: 1 MG, DAILY (EVERY NIGHT)?1 TIME PER DAY
     Route: 048
  3. CLONAZEPAM [Suspect]
     Active Substance: CLONAZEPAM
     Indication: Muscle spasms
     Dosage: 180 MG
     Route: 048
  4. CLONAZEPAM [Suspect]
     Active Substance: CLONAZEPAM
     Indication: Muscle spasticity
     Dosage: 180 MG
     Route: 048
  5. OCREVUS [Suspect]
     Active Substance: OCRELIZUMAB
     Indication: Secondary progressive multiple sclerosis
     Dosage: 300 MG, EVERY 2 WEEKS (HALF DOSE: 300 MG AND SUBSEQUENT 600 MG)?HALF DOSE: DATE OF TREATMENT: 17...
     Route: 042
     Dates: start: 20210903, end: 202110
  6. OCREVUS [Suspect]
     Active Substance: OCRELIZUMAB
     Indication: Relapsing-remitting multiple sclerosis
     Dosage: 300 MG, EVERY 2 WEEKS (HALF DOSE: 300 MG AND SUBSEQUENT 600 MG)?HALF DOSE: DATE OF TREATMENT: 17...
     Route: 042
     Dates: start: 20210903, end: 202110
  7. OCREVUS [Suspect]
     Active Substance: OCRELIZUMAB
     Indication: Secondary progressive multiple sclerosis
     Dosage: 300 MG, EVERY 2 WEEKS (HALF DOSE: 300 MG AND SUBSEQUENT 600 MG)
     Route: 042
     Dates: start: 20210917
  8. OCREVUS [Suspect]
     Active Substance: OCRELIZUMAB
     Indication: Relapsing-remitting multiple sclerosis
     Dosage: 300 MG, EVERY 2 WEEKS (HALF DOSE: 300 MG AND SUBSEQUENT 600 MG)
     Route: 042
     Dates: start: 20210917
  9. CELLCEPT [Suspect]
     Active Substance: MYCOPHENOLATE MOFETIL
     Indication: Multiple sclerosis
     Dosage: UNK
  10. DICLOFENAC [Concomitant]
     Active Substance: DICLOFENAC
     Indication: Pain
     Dosage: UNK
     Dates: start: 20200624
  11. DICLOFENAC [Concomitant]
     Active Substance: DICLOFENAC
     Indication: Inflammation
     Dosage: UNK
     Dates: start: 20200624
  12. VITAMIN D3 [Concomitant]
     Active Substance: CHOLECALCIFEROL
     Dosage: 1 TIME PER DAY
     Route: 048
  13. VITAMIN B12 [Concomitant]
     Active Substance: CYANOCOBALAMIN
     Dosage: 1 TIME PER DAY
     Route: 048
     Dates: start: 20210616
  14. VIVELLE-DOT [Concomitant]
     Active Substance: ESTRADIOL
     Dosage: 2 TIMES PER WEEK
     Route: 062
     Dates: start: 20200901
  15. ULTRAVATE [Concomitant]
     Active Substance: HALOBETASOL PROPIONATE
     Dosage: 1 TIME PER DAY
     Route: 061
     Dates: start: 20201026, end: 20210625
  16. ULTRAVATE [Concomitant]
     Active Substance: HALOBETASOL PROPIONATE
     Dosage: UNK
     Dates: start: 20210628
  17. MAGNESIUM CARBONATE [Concomitant]
     Active Substance: MAGNESIUM CARBONATE
     Dosage: 1 TIME PER DAY
     Route: 048
     Dates: start: 20160805
  18. METROGEL [Concomitant]
     Active Substance: METRONIDAZOLE
     Dosage: 1 TIME PER DAY
     Route: 061
     Dates: start: 20150603
  19. DIETARY SUPPLEMENT\UBIDECARENONE [Concomitant]
     Active Substance: DIETARY SUPPLEMENT\UBIDECARENONE
     Dosage: UNK
     Dates: end: 20210715
  20. ZANAFLEX [Concomitant]
     Active Substance: TIZANIDINE HYDROCHLORIDE
     Dosage: UNK
     Dates: end: 20210715
  21. VALIUM [Suspect]
     Active Substance: DIAZEPAM
     Indication: Muscle spasticity
     Dosage: UNK

REACTIONS (25)
  - Multiple sclerosis [Unknown]
  - Neurogenic bladder [Unknown]
  - Alopecia [Recovered/Resolved]
  - Malaise [Unknown]
  - Pain in extremity [Not Recovered/Not Resolved]
  - Central nervous system lesion [Not Recovered/Not Resolved]
  - Muscular weakness [Unknown]
  - Vertigo [Unknown]
  - Paraesthesia [Unknown]
  - Cognitive disorder [Unknown]
  - Muscle spasms [Unknown]
  - Gait disturbance [Unknown]
  - Physical examination abnormal [Unknown]
  - Product use in unapproved indication [Unknown]
  - Off label use [Unknown]
  - Asthenia [Recovered/Resolved]
  - Malaise [Not Recovered/Not Resolved]
  - Fatigue [Recovered/Resolved]
  - Pain [Recovered/Resolved]
  - Dizziness [Recovered/Resolved]
  - Myalgia [Recovered/Resolved]
  - Malignant mesenteric neoplasm [Not Recovered/Not Resolved]
  - Pleural effusion [Not Recovered/Not Resolved]
  - Fall [Unknown]
  - Hand fracture [Unknown]

NARRATIVE: CASE EVENT DATE: 20210901
